FAERS Safety Report 7346945-4 (Version None)
Quarter: 2011Q1

REPORT INFORMATION
  Report Type: 
  Country: None (occurrence: None)
  Receive Date: 20110311
  Receipt Date: 20110301
  Transmission Date: 20110831
  Serious: Yes (Hospitalization)
  Sender: FDA-Public Use
  Company Number: JP-JNJFOC-20110106341

PATIENT
  Sex: Female
  Weight: 35 kg

DRUGS (7)
  1. METHOTREXATE [Suspect]
     Indication: RHEUMATOID ARTHRITIS
     Route: 048
  2. METHOTREXATE [Suspect]
     Route: 048
  3. REMICADE [Suspect]
     Indication: RHEUMATOID ARTHRITIS
     Route: 042
  4. FOLIC ACID [Concomitant]
     Indication: RHEUMATOID ARTHRITIS
     Route: 048
  5. REMICADE [Suspect]
     Dosage: 2ND DOSE
     Route: 042
  6. BREDININ [Concomitant]
     Indication: RHEUMATOID ARTHRITIS
     Route: 048
  7. GASTER D [Concomitant]
     Indication: GASTRITIS
     Route: 048

REACTIONS (2)
  - RIB FRACTURE [None]
  - BRONCHITIS [None]
